FAERS Safety Report 6568894-1 (Version None)
Quarter: 2010Q1

REPORT INFORMATION
  Report Type: 
  Country: None (occurrence: None)
  Receive Date: 20100203
  Receipt Date: 20100125
  Transmission Date: 20100710
  Serious: No
  Sender: FDA-Public Use
  Company Number: US-B.I. PHARMACEUTICALS,INC./RIDGEFIELD-2010-BP-01121BP

PATIENT
  Sex: Male

DRUGS (3)
  1. SPIRIVA [Suspect]
     Indication: CHRONIC OBSTRUCTIVE PULMONARY DISEASE
     Dosage: 18 MCG
     Route: 055
     Dates: start: 20091001
  2. SPIRIVA [Suspect]
     Dosage: 18 MCG
     Route: 055
     Dates: start: 20070101, end: 20080201
  3. LISINOPRIL [Concomitant]
     Indication: ARRHYTHMIA
     Dates: start: 19960101

REACTIONS (4)
  - ASTHENIA [None]
  - DYSPNOEA [None]
  - MOUNTAIN SICKNESS ACUTE [None]
  - OXYGEN SATURATION DECREASED [None]
